FAERS Safety Report 5097618-2 (Version None)
Quarter: 2006Q3

REPORT INFORMATION
  Report Type: 
  Country: None (occurrence: None)
  Receive Date: 20060901
  Receipt Date: 20060825
  Transmission Date: 20061208
  Serious: Yes (Hospitalization, Other)
  Sender: FDA-Public Use
  Company Number: DEWYE788528AUG06

PATIENT
  Age: 40 Year
  Sex: Female

DRUGS (5)
  1. RAPAMUNE [Suspect]
     Indication: PROPHYLAXIS AGAINST TRANSPLANT REJECTION
     Dosage: 15 MG PER DAY ; 7 MG PER DAY ; 9 MG PER DAY
     Route: 048
     Dates: start: 20030124, end: 20030228
  2. RAPAMUNE [Suspect]
     Indication: PROPHYLAXIS AGAINST TRANSPLANT REJECTION
     Dosage: 15 MG PER DAY ; 7 MG PER DAY ; 9 MG PER DAY
     Route: 048
     Dates: start: 20030301, end: 20030326
  3. RAPAMUNE [Suspect]
     Indication: PROPHYLAXIS AGAINST TRANSPLANT REJECTION
     Dosage: 15 MG PER DAY ; 7 MG PER DAY ; 9 MG PER DAY
     Route: 048
     Dates: start: 20030327, end: 20030612
  4. METOPROLOL SUCCINATE [Concomitant]
  5. FELODIPINE [Concomitant]

REACTIONS (3)
  - ANEURYSM RUPTURED [None]
  - PERITONITIS [None]
  - SMALL INTESTINAL PERFORATION [None]
